FAERS Safety Report 8896563 (Version 1)
Quarter: 2012Q4

REPORT INFORMATION
  Report Type: Report from Study
  Country: GB (occurrence: GB)
  Receive Date: 20121108
  Receipt Date: 20121108
  Transmission Date: 20130627
  Serious: Yes (Other)
  Sender: FDA-Public Use
  Company Number: GB-UCBSA-070308

PATIENT
  Age: 64 Year
  Sex: Male

DRUGS (3)
  1. CIMZIA [Suspect]
     Indication: RHEUMATOID ARTHRITIS
     Route: 058
     Dates: start: 20110528
  2. PREDNISOLONE [Concomitant]
  3. METHOTREXATE [Concomitant]

REACTIONS (1)
  - Lobar pneumonia [Unknown]
